FAERS Safety Report 19659848 (Version 3)
Quarter: 2022Q1

REPORT INFORMATION
  Report Type: Spontaneous
  Country: US (occurrence: US)
  Receive Date: 20210805
  Receipt Date: 20220111
  Transmission Date: 20220423
  Serious: Yes (Hospitalization)
  Sender: FDA-Public Use
  Company Number: US-ALNYLAM PHARMACEUTICALS, INC.-ALN-2021-001784

PATIENT

DRUGS (2)
  1. GIVLAARI [Suspect]
     Active Substance: GIVOSIRAN SODIUM
     Indication: Product used for unknown indication
     Dosage: HALF OF DOSE
     Route: 065
     Dates: start: 202107
  2. GIVLAARI [Suspect]
     Active Substance: GIVOSIRAN SODIUM
     Dosage: FULL DOSE BASED ON WEIGHT
     Route: 065
     Dates: start: 202104

REACTIONS (15)
  - Pain [Unknown]
  - Bladder dilatation [Unknown]
  - Urinary retention [Unknown]
  - Bladder pain [Unknown]
  - Abdominal distension [Unknown]
  - Decreased appetite [Unknown]
  - Walking disability [Unknown]
  - Porphyria acute [Unknown]
  - Renal impairment [Recovered/Resolved]
  - Hepatic enzyme increased [Recovered/Resolved]
  - Fatigue [Unknown]
  - Acne cystic [Unknown]
  - Gastrooesophageal reflux disease [Unknown]
  - Inappropriate schedule of product administration [Unknown]
  - Incorrect dose administered [Unknown]

NARRATIVE: CASE EVENT DATE: 20210501
